FAERS Safety Report 8471808 (Version 2)
Quarter: 2013Q1

REPORT INFORMATION
  Report Type: Spontaneous
  Country: US (occurrence: US)
  Receive Date: 20120322
  Receipt Date: 20130322
  Transmission Date: 20140127
  Serious: No
  Sender: FDA-Public Use
  Company Number: US-BRISTOL-MYERS SQUIBB COMPANY-16372443

PATIENT
  Age: 79 Year
  Sex: Female
  Weight: 59 kg

DRUGS (19)
  1. ERBITUX [Suspect]
     Indication: THROAT CANCER
     Dosage: TEMPORARILY STOPPED ON 23JAN2012
     Dates: start: 20111212
  2. ERBITUX [Suspect]
     Indication: TONGUE NEOPLASM MALIGNANT STAGE UNSPECIFIED
     Dosage: TEMPORARILY STOPPED ON 23JAN2012
     Dates: start: 20111212
  3. ACEBUTOLOL [Concomitant]
     Route: 048
  4. LISINOPRIL [Concomitant]
     Route: 048
  5. DIGOXIN [Concomitant]
     Route: 048
  6. BABY ASPIRIN [Concomitant]
     Route: 047
  7. LEVOTHYROXIN [Concomitant]
     Route: 048
  8. ESTRADIOL [Concomitant]
     Dosage: HALF TAB
     Route: 048
  9. DOXEPIN [Concomitant]
     Route: 048
  10. HYDROCODONE [Concomitant]
     Dosage: 7.5/500 Q3H PRN
  11. MORPHINE SULFATE [Concomitant]
     Indication: PAIN
     Dosage: EXTENDED RELEASE. IMMEDIATE RELEASE 30MG
     Route: 048
  12. PREVACID [Concomitant]
     Route: 048
  13. COLACE [Concomitant]
  14. SENOKOT [Concomitant]
  15. ONDANSETRON [Concomitant]
     Indication: NAUSEA
     Route: 047
  16. MIRACLE MOUTHWASH [Concomitant]
     Indication: MOUTH ULCERATION
  17. ATARAX [Concomitant]
     Route: 048
  18. HYDROCORTISONE [Concomitant]
     Indication: RASH
  19. MUPIROCIN [Concomitant]
     Dosage: OINTMENT

REACTIONS (7)
  - Mouth ulceration [Unknown]
  - Neck pain [Unknown]
  - Weight decreased [Unknown]
  - Rash [Unknown]
  - Mucosal inflammation [Unknown]
  - Pruritus [Unknown]
  - Radiation skin injury [Unknown]
